FAERS Safety Report 17547377 (Version 1)
Quarter: 2020Q1

REPORT INFORMATION
  Report Type: Spontaneous
  Country: US (occurrence: US)
  Receive Date: 20200316
  Receipt Date: 20200316
  Transmission Date: 20200409
  Serious: Yes (Other)
  Sender: FDA-Public Use
  Company Number: US-NATCO PHARMA-2020NAT00012

PATIENT
  Age: 64 Year
  Sex: Female

DRUGS (1)
  1. AZACITIDINE. [Suspect]
     Active Substance: AZACITIDINE
     Indication: ACUTE MYELOID LEUKAEMIA
     Dosage: 50 MG/M2, 1X/DAY
     Route: 065

REACTIONS (3)
  - Acute kidney injury [Unknown]
  - Acute hepatic failure [Unknown]
  - Venoocclusive disease [Unknown]
